FAERS Safety Report 11897288 (Version 1)
Quarter: 2016Q1

REPORT INFORMATION
  Report Type: Spontaneous
  Country: US (occurrence: US)
  Receive Date: 20160108
  Receipt Date: 20160108
  Transmission Date: 20160526
  Serious: Yes (Other)
  Sender: FDA-Public Use
  Company Number: US-BRISTOL-MYERS SQUIBB COMPANY-BMS-2015-092489

PATIENT
  Age: 57 Year
  Sex: Male
  Weight: 69.84 kg

DRUGS (1)
  1. OPDIVO [Suspect]
     Active Substance: NIVOLUMAB
     Indication: NON-SMALL CELL LUNG CANCER
     Dosage: 210 MG, Q2WK
     Route: 065
     Dates: start: 20151214

REACTIONS (4)
  - Loss of consciousness [Unknown]
  - Fatigue [Unknown]
  - Hospice care [Unknown]
  - Pain [Unknown]

NARRATIVE: CASE EVENT DATE: 20151223
